FAERS Safety Report 6983836-2 (Version None)
Quarter: 2010Q3

REPORT INFORMATION
  Report Type: 
  Country: None (occurrence: None)
  Receive Date: 20100914
  Receipt Date: 20090211
  Transmission Date: 20110219
  Serious: No
  Sender: FDA-Public Use
  Company Number: US-WYE-H08196309

PATIENT
  Age: 71 Year
  Sex: Female
  Weight: 53.12 kg

DRUGS (2)
  1. IBUPROFEN [Suspect]
     Indication: ANALGESIC THERAPY
     Dosage: 1-2 CAPLETS AS NEEDED
     Route: 048
     Dates: end: 20090211
  2. THYROID [Concomitant]

REACTIONS (1)
  - HYPERHIDROSIS [None]
